FAERS Safety Report 17454286 (Version 2)
Quarter: 2020Q2

REPORT INFORMATION
  Report Type: Other
  Country: IT (occurrence: IT)
  Receive Date: 20200225
  Receipt Date: 20200407
  Transmission Date: 20200713
  Serious: Yes (Hospitalization)
  Sender: FDA-Public Use
  Company Number: IT-APOTEX-2020AP008023

PATIENT
  Age: 16 Year
  Sex: Female

DRUGS (1)
  1. PAROXETINE HYDROCHLORIDE. [Suspect]
     Active Substance: PAROXETINE HYDROCHLORIDE
     Indication: PRODUCT USED FOR UNKNOWN INDICATION
     Dosage: 3 DF, SINGLE, IN TOTAL
     Route: 048
     Dates: start: 20191206, end: 20191206

REACTIONS (5)
  - Muscle rigidity [Recovering/Resolving]
  - Tremor [Recovering/Resolving]
  - Medication error [Recovering/Resolving]
  - Agitation [Recovering/Resolving]
  - Mydriasis [Recovering/Resolving]

NARRATIVE: CASE EVENT DATE: 20200107
